FAERS Safety Report 4618415-5 (Version None)
Quarter: 2005Q1

REPORT INFORMATION
  Report Type: 
  Country: None (occurrence: None)
  Receive Date: 20050323
  Receipt Date: 20050310
  Transmission Date: 20050727
  Serious: Yes (Hospitalization, Other)
  Sender: FDA-Public Use
  Company Number: 2004-00770

PATIENT
  Age: 65 Year
  Sex: Female
  Weight: 66 kg

DRUGS (8)
  1. VELCADE [Suspect]
     Indication: PLASMACYTOMA
     Dosage: SEE IMAGE
     Route: 042
     Dates: start: 20041101, end: 20041108
  2. VELCADE [Suspect]
     Indication: PLASMACYTOMA
     Dosage: SEE IMAGE
     Route: 042
     Dates: start: 20041125, end: 20041202
  3. ZOMETA [Concomitant]
  4. ERYTHROPOIETIN (ERYTHROPOIETIN) [Concomitant]
  5. MORPHINE SULFATE [Concomitant]
  6. ALLOPURINOL [Concomitant]
  7. PANTOPRAZOLE SODIUM [Concomitant]
  8. METOCLOPRAMIDE [Concomitant]

REACTIONS (31)
  - ALANINE AMINOTRANSFERASE INCREASED [None]
  - ASPARTATE AMINOTRANSFERASE INCREASED [None]
  - BLOOD ALBUMIN INCREASED [None]
  - BLOOD CALCIUM DECREASED [None]
  - BLOOD IMMUNOGLOBULIN A DECREASED [None]
  - BLOOD IMMUNOGLOBULIN G DECREASED [None]
  - BLOOD IMMUNOGLOBULIN M DECREASED [None]
  - BLOOD LACTATE DEHYDROGENASE INCREASED [None]
  - DECREASED APPETITE [None]
  - ELECTROPHORESIS PROTEIN ABNORMAL [None]
  - GAMMA-GLUTAMYLTRANSFERASE INCREASED [None]
  - GENERAL PHYSICAL HEALTH DETERIORATION [None]
  - HAEMATOCRIT DECREASED [None]
  - HAEMOGLOBIN DECREASED [None]
  - HALITOSIS [None]
  - HERPES ZOSTER [None]
  - HYPOKALAEMIA [None]
  - IMMUNODEFICIENCY [None]
  - IMMUNOGLOBULINS DECREASED [None]
  - INFECTION [None]
  - LYMPHADENOPATHY [None]
  - LYMPHOCYTE PERCENTAGE DECREASED [None]
  - MUCOSAL DRYNESS [None]
  - NEUTROPHIL PERCENTAGE INCREASED [None]
  - PALLOR [None]
  - PLATELET COUNT DECREASED [None]
  - PYREXIA [None]
  - RED BLOOD CELL COUNT DECREASED [None]
  - SEPSIS [None]
  - TONGUE DRY [None]
  - TONSILLAR DISORDER [None]
